FAERS Safety Report 18785241 (Version 1)
Quarter: 2021Q1

REPORT INFORMATION
  Report Type: Spontaneous
  Country: DE (occurrence: JP)
  Receive Date: 20210125
  Receipt Date: 20210125
  Transmission Date: 20210419
  Serious: Yes (Hospitalization)
  Sender: FDA-Public Use
  Company Number: JP-ELI_LILLY_AND_COMPANY-JP202101009242

PATIENT

DRUGS (4)
  1. BINIMETINIB [Concomitant]
     Active Substance: BINIMETINIB
     Indication: COLORECTAL CANCER
     Dosage: 45 MG, UNK
     Route: 048
     Dates: start: 20201201
  2. ERBITUX [Suspect]
     Active Substance: CETUXIMAB
     Indication: COLORECTAL CANCER
     Dosage: 400 MG/M2, WEEKLY (1/W)
     Route: 041
     Dates: start: 20201201
  3. MINOMYCIN [Suspect]
     Active Substance: MINOCYCLINE HYDROCHLORIDE
     Indication: RASH
     Dosage: 50 MG, DAILY
     Route: 048
     Dates: start: 20201201
  4. ENCORAFENIB [Concomitant]
     Active Substance: ENCORAFENIB
     Indication: COLORECTAL CANCER
     Dosage: 300 MG, DAILY
     Route: 048
     Dates: start: 20201201

REACTIONS (2)
  - Platelet count decreased [Recovered/Resolved]
  - Off label use [Unknown]

NARRATIVE: CASE EVENT DATE: 20201230
